FAERS Safety Report 10788253 (Version 1)
Quarter: 2015Q1

REPORT INFORMATION
  Report Type: Spontaneous
  Country: US (occurrence: None)
  Receive Date: 20150211
  Receipt Date: 20150211
  Transmission Date: 20150721
  Serious: No
  Sender: FDA-Public Use
  Company Number: None

PATIENT
  Age: 76 Year
  Sex: Male

DRUGS (1)
  1. CAPECITABINE 500MG TEVA PHARMACEUTICALS [Suspect]
     Active Substance: CAPECITABINE
     Dosage: 1500 MG BID FOR 14 DAYS ON THEN 7 DAYS BY MOUTH
     Route: 048
     Dates: start: 20150126, end: 20150202

REACTIONS (4)
  - Rash pruritic [None]
  - Rash erythematous [None]
  - Skin exfoliation [None]
  - Swelling [None]

NARRATIVE: CASE EVENT DATE: 20150202
